FAERS Safety Report 15154303 (Version 1)
Quarter: 2018Q3

REPORT INFORMATION
  Report Type: Spontaneous
  Country: IT (occurrence: IT)
  Receive Date: 20180717
  Receipt Date: 20180717
  Transmission Date: 20181010
  Serious: Yes (Other)
  Sender: FDA-Public Use
  Company Number: IT-MYLANLABS-2018M1051152

PATIENT
  Age: 87 Year
  Sex: Female

DRUGS (5)
  1. LOSAZID [Suspect]
     Active Substance: HYDROCHLOROTHIAZIDE\LOSARTAN POTASSIUM
     Indication: HYPERTENSION
     Dosage: 62.5 ?G, QD
     Route: 048
     Dates: start: 20150101, end: 20171205
  2. ATORVASTATIN [Suspect]
     Active Substance: ATORVASTATIN
     Indication: HYPERCHOLESTEROLAEMIA
     Dosage: 20 MG, QD
     Route: 048
     Dates: start: 20150101, end: 20171205
  3. DAPAROX                            /00830802/ [Suspect]
     Active Substance: PAROXETINE HYDROCHLORIDE
     Indication: MAJOR DEPRESSION
     Dosage: 20 MG, QD
     Route: 048
     Dates: start: 20150101, end: 20171205
  4. CARDIOASPIRIN [Suspect]
     Active Substance: ASPIRIN
     Indication: ARTERIAL THROMBOSIS
     Dosage: 100 MG, QD
     Route: 048
     Dates: start: 20150101, end: 20171205
  5. CINNARIZINE [Suspect]
     Active Substance: CINNARIZINE
     Indication: TEMPORAL ARTERITIS
     Dosage: 100 MG, QD
     Route: 048
     Dates: start: 20150101, end: 20171205

REACTIONS (2)
  - Drug abuse [Recovering/Resolving]
  - Depression [Recovering/Resolving]

NARRATIVE: CASE EVENT DATE: 20171205
